FAERS Safety Report 9516472 (Version 1)
Quarter: 2013Q1

REPORT INFORMATION
  Report Type: Spontaneous
  Country: US (occurrence: None)
  Receive Date: 20130305
  Receipt Date: 20130305
  Transmission Date: 20140127
  Serious: Yes (Hospitalization, Other)
  Sender: FDA-Public Use
  Company Number: 163-21880-12081309

PATIENT
  Age: 74 Year
  Sex: Female

DRUGS (8)
  1. REVLIMID (LENALIDOMIDE) (CAPSULES) [Suspect]
     Indication: MYELODYSPLASTIC SYNDROME
     Dosage: 28 IN 28 D
     Route: 048
     Dates: start: 20120801
  2. CIPROFLOXACIN [Concomitant]
  3. LEVOTHYROXINE [Concomitant]
  4. QUINAPRIL [Concomitant]
  5. OMEPRAZOLE [Concomitant]
  6. PERROUS SULFATE [Concomitant]
  7. MULTIVITAMIN [Concomitant]
  8. COUMADIN [Concomitant]

REACTIONS (2)
  - Deep vein thrombosis [None]
  - Pruritus [None]
